FAERS Safety Report 16243068 (Version 1)
Quarter: 2019Q2

REPORT INFORMATION
  Report Type: Spontaneous
  Country: US (occurrence: US)
  Receive Date: 20190425
  Receipt Date: 20190425
  Transmission Date: 20190711
  Serious: No
  Sender: FDA-Public Use
  Company Number: None

PATIENT
  Age: 41 Year
  Sex: Female
  Weight: 52.3 kg

DRUGS (1)
  1. RITUXIMAB. [Suspect]
     Active Substance: RITUXIMAB
     Indication: HASHIMOTO^S ENCEPHALOPATHY
     Dosage: ?          OTHER FREQUENCY:EVERY 14 DAYS;?
     Route: 042
     Dates: start: 20150810, end: 20190425

REACTIONS (4)
  - Throat irritation [None]
  - Chest discomfort [None]
  - Infusion related reaction [None]
  - Refusal of treatment by patient [None]

NARRATIVE: CASE EVENT DATE: 20190425
